FAERS Safety Report 7900536-2 (Version None)
Quarter: 2011Q4

REPORT INFORMATION
  Report Type: 
  Country: None (occurrence: None)
  Receive Date: 20111108
  Receipt Date: 20111103
  Transmission Date: 20120403
  Serious: Yes (Death)
  Sender: FDA-Public Use
  Company Number: DE-BRISTOL-MYERS SQUIBB COMPANY-16061137

PATIENT

DRUGS (1)
  1. YERVOY [Suspect]

REACTIONS (1)
  - NEOPLASM MALIGNANT [None]
